FAERS Safety Report 16358003 (Version 1)
Quarter: 2019Q2

REPORT INFORMATION
  Report Type: Spontaneous
  Country: HU (occurrence: HU)
  Receive Date: 20190527
  Receipt Date: 20190527
  Transmission Date: 20190711
  Serious: Yes (Other)
  Sender: FDA-Public Use
  Company Number: PHHY2019HU118950

PATIENT
  Sex: Female

DRUGS (2)
  1. MEKINIST [Suspect]
     Active Substance: TRAMETINIB DIMETHYL SULFOXIDE
     Indication: ADENOCARCINOMA
     Dosage: UNK
     Route: 065
  2. PALBOCICLIB [Suspect]
     Active Substance: PALBOCICLIB
     Indication: ADENOCARCINOMA
     Dosage: UNK (FOR 2 MONTHS)
     Route: 065

REACTIONS (9)
  - Erysipelas [Unknown]
  - Skin exfoliation [Unknown]
  - Scab [Unknown]
  - Off label use [Unknown]
  - Face oedema [Unknown]
  - Product use in unapproved indication [Unknown]
  - Skin ulcer [Unknown]
  - Neutropenia [Unknown]
  - Skin lesion [Unknown]
